FAERS Safety Report 8685084 (Version 2)
Quarter: 2013Q3

REPORT INFORMATION
  Report Type: Spontaneous
  Country: US (occurrence: US)
  Receive Date: 20120726
  Receipt Date: 20130924
  Transmission Date: 20140515
  Serious: No
  Sender: FDA-Public Use
  Company Number: US-ASTRAZENECA-2012SE44332

PATIENT
  Age: 83 Year
  Sex: Female
  Weight: 59 kg

DRUGS (3)
  1. SYMBICORT PMDI [Suspect]
     Indication: CHRONIC OBSTRUCTIVE PULMONARY DISEASE
     Dosage: 80/4.5, 2 PUFFS BID
     Route: 055
  2. NEXIUM [Suspect]
     Route: 048
  3. PREDNISONE [Concomitant]

REACTIONS (4)
  - Gait disturbance [Unknown]
  - Malaise [Unknown]
  - Hip disarticulation [Unknown]
  - Intentional drug misuse [Unknown]
